FAERS Safety Report 6120598-5 (Version None)
Quarter: 2009Q1

REPORT INFORMATION
  Report Type: 
  Country: None (occurrence: None)
  Receive Date: 20090317
  Receipt Date: 20090309
  Transmission Date: 20090719
  Serious: Yes (Other)
  Sender: FDA-Public Use
  Company Number: US-ASTRAZENECA-2007UW28282

PATIENT
  Age: 51 Year
  Sex: Female

DRUGS (3)
  1. ARIMIDEX [Suspect]
     Indication: BREAST CANCER
     Route: 048
  2. ASPIRIN [Concomitant]
  3. ALENDRONIC ACID [Concomitant]

REACTIONS (1)
  - RETINAL HAEMORRHAGE [None]
